FAERS Safety Report 17528177 (Version 1)
Quarter: 2020Q1

REPORT INFORMATION
  Report Type: Spontaneous
  Country: FR (occurrence: FR)
  Receive Date: 20200311
  Receipt Date: 20200311
  Transmission Date: 20200409
  Serious: Yes (Hospitalization)
  Sender: FDA-Public Use
  Company Number: FR-JNJFOC-20200300007

PATIENT
  Age: 19 Year
  Sex: Male

DRUGS (1)
  1. RISPERDAL [Suspect]
     Active Substance: RISPERIDONE
     Indication: PERSONALITY DISORDER
     Dosage: ; IN TOTAL
     Route: 048
     Dates: end: 20191007

REACTIONS (4)
  - Toxicity to various agents [Recovered/Resolved]
  - Product use in unapproved indication [Unknown]
  - Psychomotor skills impaired [Recovered/Resolved]
  - Off label use [Unknown]

NARRATIVE: CASE EVENT DATE: 20191006
